FAERS Safety Report 10628609 (Version 1)
Quarter: 2014Q4

REPORT INFORMATION
  Report Type: Spontaneous
  Country: US (occurrence: US)
  Receive Date: 20141205
  Receipt Date: 20141205
  Transmission Date: 20150529
  Serious: Yes (Other)
  Sender: FDA-Public Use
  Company Number: US-BRISTOL-MYERS SQUIBB COMPANY-21166780

PATIENT
  Age: 38 Year
  Sex: Female

DRUGS (3)
  1. NORVIR [Concomitant]
     Active Substance: RITONAVIR
  2. REYATAZ [Suspect]
     Active Substance: ATAZANAVIR SULFATE
  3. TRUVADA [Concomitant]
     Active Substance: EMTRICITABINE\TENOFOVIR DISOPROXIL FUMARATE

REACTIONS (9)
  - Incorrect product storage [Unknown]
  - Pyrexia [Unknown]
  - Feeling of body temperature change [Unknown]
  - Drug ineffective [Unknown]
  - Nausea [Unknown]
  - Malaise [Unknown]
  - Drug resistance [Unknown]
  - Chills [Unknown]
  - Bone pain [Unknown]
